FAERS Safety Report 16682130 (Version 1)
Quarter: 2019Q3

REPORT INFORMATION
  Report Type: Spontaneous
  Country: GR (occurrence: GR)
  Receive Date: 20190808
  Receipt Date: 20190808
  Transmission Date: 20191004
  Serious: Yes (Other)
  Sender: FDA-Public Use
  Company Number: GR-BAYER-2017-167349

PATIENT
  Age: 27 Year
  Sex: Male

DRUGS (14)
  1. CAPREOMYCIN [Concomitant]
     Active Substance: CAPREOMYCIN
     Indication: TUBERCULOSIS
     Dosage: UNK
  2. BEDAQUILINE [Interacting]
     Active Substance: BEDAQUILINE
     Indication: TUBERCULOSIS
     Dosage: 200 MG, OW
  3. PYRAZINAMIDE. [Suspect]
     Active Substance: PYRAZINAMIDE
     Indication: TUBERCULOSIS
     Dosage: UNK
  4. MOXIFLOXACIN ORAL [Suspect]
     Active Substance: MOXIFLOXACIN
     Indication: TUBERCULOSIS
     Dosage: UNK
  5. CLOFAZIMINE [Suspect]
     Active Substance: CLOFAZIMINE
  6. CYCLOSERINE. [Concomitant]
     Active Substance: CYCLOSERINE
     Indication: TUBERCULOSIS
     Dosage: UNK
  7. BEDAQUILINE [Interacting]
     Active Substance: BEDAQUILINE
     Indication: TUBERCULOSIS
     Dosage: 400 MG, QD
  8. CILASTATIN [Concomitant]
     Active Substance: CILASTATIN
     Indication: TUBERCULOSIS
     Dosage: UNK
  9. PARA-AMINOSALICYLIC ACID [Concomitant]
     Active Substance: AMINOSALICYLIC ACID
     Indication: TUBERCULOSIS
     Dosage: UNK
  10. ETHIONAMIDE [Suspect]
     Active Substance: ETHIONAMIDE
     Indication: TUBERCULOSIS
     Dosage: UNK
  11. CYCLOSERINE. [Concomitant]
     Active Substance: CYCLOSERINE
     Indication: TUBERCULOSIS
  12. LINEZOLID. [Concomitant]
     Active Substance: LINEZOLID
     Indication: TUBERCULOSIS
     Dosage: UNK
  13. MOXIFLOXACIN ORAL [Suspect]
     Active Substance: MOXIFLOXACIN
     Indication: TUBERCULOSIS
     Dosage: 600 MG, UNK
  14. IMIPENEM AND CILASTATIN [Concomitant]
     Active Substance: CILASTATIN SODIUM\IMIPENEM
     Indication: TUBERCULOSIS
     Dosage: UNK

REACTIONS (5)
  - Off label use [None]
  - Electrocardiogram QT prolonged [Unknown]
  - Drug interaction [Unknown]
  - Transaminases increased [None]
  - Drug effective for unapproved indication [None]
